FAERS Safety Report 23844224 (Version 1)
Quarter: 2024Q2

REPORT INFORMATION
  Report Type: Spontaneous
  Country: ES (occurrence: ES)
  Receive Date: 20240510
  Receipt Date: 20240510
  Transmission Date: 20240716
  Serious: Yes (Life-Threatening, Hospitalization)
  Sender: FDA-Public Use
  Company Number: None

PATIENT
  Age: 65 Year
  Sex: Female

DRUGS (4)
  1. GABAPENTIN [Interacting]
     Active Substance: GABAPENTIN
     Indication: Pain
     Dosage: GABAPENTIN (2641A)
     Route: 048
     Dates: start: 20240327, end: 20240402
  2. ROBAXIN [Interacting]
     Active Substance: METHOCARBAMOL
     Indication: Pain
     Route: 048
     Dates: start: 20240324, end: 20240329
  3. DEXAMETHASONE [Concomitant]
     Active Substance: DEXAMETHASONE
     Indication: Pain
     Dosage: DEXAMETASONA (722A)
     Route: 048
     Dates: start: 20230327, end: 20240229
  4. ZALDIAR [Interacting]
     Active Substance: ACETAMINOPHEN\TRAMADOL HYDROCHLORIDE
     Indication: Pain
     Dosage: ZALDIAR 37.5 MG/325 MG,  20 TABLETS
     Route: 048
     Dates: start: 20240324, end: 20240329

REACTIONS (1)
  - Atrioventricular block complete [Recovered/Resolved]

NARRATIVE: CASE EVENT DATE: 20240329
